FAERS Safety Report 18182764 (Version 1)
Quarter: 2020Q3

REPORT INFORMATION
  Report Type: Report from Study
  Country: JP (occurrence: JP)
  Receive Date: 20200821
  Receipt Date: 20200821
  Transmission Date: 20201103
  Serious: No
  Sender: FDA-Public Use
  Company Number: JP-COVIS PHARMA B.V.-2013P1014888

PATIENT
  Age: 72 Year
  Sex: Male
  Weight: 52 kg

DRUGS (9)
  1. MIRACLID [Concomitant]
     Active Substance: ULINASTATIN
     Indication: PANCREATITIS ACUTE
     Dates: start: 20010822, end: 20010907
  2. FAMOTIDINE. [Concomitant]
     Active Substance: FAMOTIDINE
     Indication: PANCREATITIS
     Route: 042
     Dates: start: 20010822, end: 20010828
  3. JUZENTAIHOTO [Concomitant]
     Active Substance: HERBALS
     Indication: DECREASED APPETITE
     Route: 048
     Dates: start: 20010608, end: 20010809
  4. VOLTAREN [Concomitant]
     Active Substance: DICLOFENAC SODIUM
     Indication: ABDOMINAL PAIN
     Dates: start: 20010902
  5. REMINARON [Concomitant]
     Active Substance: GABEXATE MESYLATE
     Indication: PANCREATITIS ACUTE
     Dates: start: 20010822, end: 20010828
  6. ACINON [Concomitant]
     Active Substance: NIZATIDINE
     Indication: PANCREATITIS
     Route: 048
     Dates: start: 20010829, end: 20010907
  7. FOIPAN [Concomitant]
     Active Substance: CAMOSTAT MESYLATE
     Indication: PANCREATITIS
     Route: 048
     Dates: start: 20010829, end: 20010907
  8. SULPERAZONE [Concomitant]
     Active Substance: CEFOPERAZONE SODIUM\SULBACTAM SODIUM
     Indication: PANCREATITIS ACUTE
     Dates: start: 20010822, end: 20010902
  9. RILUZOLE. [Suspect]
     Active Substance: RILUZOLE
     Indication: AMYOTROPHIC LATERAL SCLEROSIS
     Route: 048
     Dates: start: 20010203, end: 20010907

REACTIONS (1)
  - Pancreatitis acute [Recovering/Resolving]

NARRATIVE: CASE EVENT DATE: 20010821
